FAERS Safety Report 6851759-5 (Version None)
Quarter: 2010Q3

REPORT INFORMATION
  Report Type: 
  Country: None (occurrence: None)
  Receive Date: 20100717
  Receipt Date: 20071029
  Transmission Date: 20110219
  Serious: No
  Sender: FDA-Public Use
  Company Number: US-PFIZER INC-2007092463

PATIENT
  Sex: Female
  Weight: 65.8 kg

DRUGS (4)
  1. CHANTIX [Suspect]
     Indication: SMOKING CESSATION THERAPY
     Dosage: 0.5 MG DAILY EVERY DAY TDD:0.5 MG
     Dates: start: 20071027
  2. XANAX [Concomitant]
  3. INDERAL [Concomitant]
  4. TOFRANIL [Concomitant]

REACTIONS (2)
  - DIZZINESS [None]
  - TREMOR [None]
